FAERS Safety Report 6256202-5 (Version None)
Quarter: 2009Q3

REPORT INFORMATION
  Report Type: 
  Country: None (occurrence: None)
  Receive Date: 20090706
  Receipt Date: 20090529
  Transmission Date: 20100115
  Serious: No
  Sender: FDA-Public Use
  Company Number: US-BAYER-200910527NA

PATIENT
  Age: 45 Year
  Sex: Male
  Weight: 79 kg

DRUGS (4)
  1. AVELOX [Suspect]
     Indication: DRUG USE FOR UNKNOWN INDICATION
     Dosage: TOTAL DAILY DOSE: 400 MG  UNIT DOSE: 400 MG
     Route: 048
     Dates: start: 20081219
  2. TYLENOL (CAPLET) [Concomitant]
     Dates: start: 20081215
  3. ASPIRIN [Concomitant]
     Dates: start: 20081215
  4. NYQUIL [Concomitant]

REACTIONS (4)
  - DIZZINESS [None]
  - EYE SWELLING [None]
  - HYPERSENSITIVITY [None]
  - PANIC REACTION [None]
